FAERS Safety Report 19948027 (Version 2)
Quarter: 2021Q4

REPORT INFORMATION
  Report Type: Spontaneous
  Country: JP (occurrence: JP)
  Receive Date: 20211013
  Receipt Date: 20211109
  Transmission Date: 20220304
  Serious: Yes (Other)
  Sender: FDA-Public Use
  Company Number: JP-TAKEDA-2021TJP099562

PATIENT
  Age: 8 Decade
  Sex: Male

DRUGS (1)
  1. VECTIBIX [Suspect]
     Active Substance: PANITUMUMAB
     Indication: Colorectal cancer
     Dosage: UNK, Q2WEEKS
     Route: 041
     Dates: start: 20210917

REACTIONS (2)
  - Pyelitis [Unknown]
  - Rash [Unknown]

NARRATIVE: CASE EVENT DATE: 20211001
